FAERS Safety Report 8942390 (Version 1)
Quarter: 2012Q4

REPORT INFORMATION
  Report Type: Report from Study
  Country: CA (occurrence: CA)
  Receive Date: 20121204
  Receipt Date: 20121204
  Transmission Date: 20130627
  Serious: Yes (Hospitalization)
  Sender: FDA-Public Use
  Company Number: CA-JNJFOC-20121112490

PATIENT
  Age: 50 None
  Sex: Male
  Weight: 120.6 kg

DRUGS (1)
  1. REMICADE [Suspect]
     Indication: CROHN^S DISEASE
     Dosage: once in 6-7 weeks
     Route: 042
     Dates: start: 20080210

REACTIONS (3)
  - Confusional state [Unknown]
  - Hyperthermia [Unknown]
  - Sinusitis [Unknown]
